FAERS Safety Report 5066828-2 (Version None)
Quarter: 2006Q3

REPORT INFORMATION
  Report Type: 
  Country: None (occurrence: None)
  Receive Date: 20060801
  Receipt Date: 20060720
  Transmission Date: 20061208
  Serious: Yes (Other)
  Sender: FDA-Public Use
  Company Number: CA-BRISTOL-MYERS SQUIBB COMPANY-13449004

PATIENT
  Age: 71 Year
  Sex: Female

DRUGS (16)
  1. TRAZODONE HCL [Suspect]
     Indication: NEURALGIA
  2. INSULIN [Concomitant]
     Indication: DIABETES MELLITUS
  3. PREDNISONE [Concomitant]
  4. ATENOLOL [Concomitant]
  5. MIDODRINE HCL [Concomitant]
  6. SIMVASTIN [Concomitant]
  7. ASPIRIN [Concomitant]
  8. CALCITRIOL [Concomitant]
  9. FOLIC ACID [Concomitant]
  10. PANTOPRAZOLE SODIUM [Concomitant]
  11. DOMPERIDONE [Concomitant]
  12. DOCUSATE [Concomitant]
  13. LORAZEPAM [Concomitant]
  14. VENLAFAXINE HCL [Concomitant]
  15. NORTRIPTYLINE HCL [Concomitant]
  16. HYDROMORPHONE HCL [Concomitant]

REACTIONS (1)
  - HAEMOLYTIC ANAEMIA [None]
